FAERS Safety Report 4972264-7 (Version None)
Quarter: 2006Q1

REPORT INFORMATION
  Report Type: 
  Country: None (occurrence: None)
  Receive Date: 20060210
  Receipt Date: 20050919
  Transmission Date: 20060701
  Serious: Yes (Other)
  Sender: FDA-Public Use
  Company Number: 2005-US-00128

PATIENT
  Age: 75 Year
  Sex: Female
  Weight: 108.8633 kg

DRUGS (7)
  1. INDOMETHACIN [Suspect]
     Indication: ARTHRITIS
     Dosage: 50 MG QHS, ORAL
     Route: 048
     Dates: start: 20050501, end: 20051001
  2. METOPROLOL SUCCINATE [Concomitant]
  3. NISOLDIPINE [Concomitant]
  4. LOSARTAN POTASSIUM [Concomitant]
  5. ROSIGLITAZONE MALEATE [Concomitant]
  6. GLIPIZIDE [Concomitant]
  7. SIMVASTATIN [Concomitant]

REACTIONS (2)
  - MACULOPATHY [None]
  - VISUAL FIELD DEFECT [None]
